FAERS Safety Report 19367514 (Version 1)
Quarter: 2021Q2

REPORT INFORMATION
  Report Type: Spontaneous
  Country: US (occurrence: US)
  Receive Date: 20210602
  Receipt Date: 20210602
  Transmission Date: 20210717
  Serious: Yes (Other)
  Sender: FDA-Public Use
  Company Number: US-SUNOVION-2021SUN002042

PATIENT
  Age: 53 Year
  Sex: Male

DRUGS (1)
  1. APTIOM [Suspect]
     Active Substance: ESLICARBAZEPINE ACETATE
     Indication: PARTIAL SEIZURES
     Dosage: 1200 MG(1 800MG TAB WITH 1/2 800MG TAB=1200MG TOTAL), QD
     Route: 048
     Dates: start: 20210524

REACTIONS (1)
  - Seizure [Not Recovered/Not Resolved]

NARRATIVE: CASE EVENT DATE: 20210524
